FAERS Safety Report 5142502-9 (Version None)
Quarter: 2006Q4

REPORT INFORMATION
  Report Type: 
  Country: None (occurrence: None)
  Receive Date: 20061027
  Receipt Date: 20061019
  Transmission Date: 20070319
  Serious: Yes (Other)
  Sender: FDA-Public Use
  Company Number: 163-20785-06100983

PATIENT
  Age: 77 Year
  Sex: Female

DRUGS (2)
  1. THALOMID [Suspect]
     Indication: MULTIPLE MYELOMA
     Dosage: 1 IN 1 D, ORAL
     Route: 048
     Dates: start: 20050318, end: 20050421
  2. WARFARIN SODIUM [Suspect]
     Indication: DRUG USE FOR UNKNOWN INDICATION

REACTIONS (3)
  - ARTERIAL RUPTURE [None]
  - CONSTIPATION [None]
  - RECTAL HAEMORRHAGE [None]
